FAERS Safety Report 13610935 (Version 3)
Quarter: 2017Q3

REPORT INFORMATION
  Report Type: Spontaneous
  Country: IQ (occurrence: IQ)
  Receive Date: 20170605
  Receipt Date: 20170801
  Transmission Date: 20171127
  Serious: Yes (Disabling)
  Sender: FDA-Public Use
  Company Number: PHHY2017IQ079168

PATIENT
  Age: 52 Year
  Sex: Female

DRUGS (2)
  1. EXEMESTANE. [Concomitant]
     Active Substance: EXEMESTANE
     Indication: BREAST CANCER METASTATIC
     Dosage: UNK
     Route: 065
  2. EVEROLIMUS [Suspect]
     Active Substance: EVEROLIMUS
     Indication: BREAST CANCER METASTATIC
     Dosage: 10 MG/KG, QD
     Route: 048
     Dates: start: 20170207

REACTIONS (3)
  - Vocal cord paralysis [Not Recovered/Not Resolved]
  - Dysphonia [Unknown]
  - Aphonia [Recovering/Resolving]
